FAERS Safety Report 11362338 (Version 1)
Quarter: 2015Q3

REPORT INFORMATION
  Report Type: Spontaneous
  Country: US (occurrence: US)
  Receive Date: 20150810
  Receipt Date: 20150810
  Transmission Date: 20151125
  Serious: Yes (Other)
  Sender: FDA-Public Use
  Company Number: PHHY2015US092869

PATIENT
  Age: 42 Year
  Sex: Female

DRUGS (2)
  1. HEPARIN [Suspect]
     Active Substance: HEPARIN SODIUM
     Indication: PULMONARY EMBOLISM
     Dosage: 80 IU/KG,
     Route: 040
  2. HEPARIN [Suspect]
     Active Substance: HEPARIN SODIUM
     Dosage: 18 IU/KG, PER HOUR
     Route: 040

REACTIONS (9)
  - Encephalopathy [Recovering/Resolving]
  - Heparin-induced thrombocytopenia [Recovered/Resolved]
  - Peripheral coldness [Recovered/Resolved]
  - Infarction [Recovered/Resolved]
  - Intestinal ischaemia [Recovering/Resolving]
  - Haemorrhage [Recovering/Resolving]
  - Mental status changes [Recovering/Resolving]
  - Abdominal pain [Recovering/Resolving]
  - Haematemesis [Recovering/Resolving]
